FAERS Safety Report 17269513 (Version 1)
Quarter: 2020Q1

REPORT INFORMATION
  Report Type: Spontaneous
  Country: FR (occurrence: FR)
  Receive Date: 20200114
  Receipt Date: 20200114
  Transmission Date: 20200409
  Serious: Yes (Hospitalization)
  Sender: FDA-Public Use
  Company Number: FR-MYLANLABS-2020M1003597

PATIENT
  Age: 69 Year
  Sex: Female
  Weight: 85 kg

DRUGS (14)
  1. SMECTA [Suspect]
     Active Substance: MONTMORILLONITE
     Indication: DIARRHOEA
     Dosage: 3 DOSAGE FORM, QD
     Route: 048
     Dates: start: 20190903, end: 20190911
  2. KARDEGIC [Concomitant]
     Active Substance: ASPIRIN DL-LYSINE
     Dosage: UNK
  3. NEBIVOLOL. [Concomitant]
     Active Substance: NEBIVOLOL
     Dosage: UNK
  4. ULTRA LEVURE [Concomitant]
     Active Substance: SACCHAROMYCES CEREVISIAE
     Dosage: UNK
  5. ZAVICEFTA [Suspect]
     Active Substance: AVIBACTAM SODIUM\CEFTAZIDIME
     Indication: DEVICE RELATED INFECTION
     Dosage: 1 DOSAGE FORM, Q8H
     Route: 042
     Dates: start: 20190817, end: 20190908
  6. LOPERAMIDE LYOC [Suspect]
     Active Substance: LOPERAMIDE HYDROCHLORIDE
     Indication: DIARRHOEA
     Dosage: 1 DOSAGE FORM, PRN
     Route: 048
     Dates: start: 20190904, end: 20190905
  7. ALPRAZOLAM. [Concomitant]
     Active Substance: ALPRAZOLAM
     Dosage: UNK
  8. OFLOXACINE MYLAN 200 MG, COMPRIM? PELLICUL? S?CABLE [Suspect]
     Active Substance: OFLOXACIN
     Indication: DEVICE RELATED INFECTION
     Dosage: 3 DOSAGE FORM, QD
     Route: 048
     Dates: start: 20190816, end: 20190917
  9. DOMPERIDONE ARROW                  /00498201/ [Suspect]
     Active Substance: DOMPERIDONE
     Indication: VOMITING
     Dosage: 1 DOSAGE FORM, PRN
     Route: 048
     Dates: start: 20190904, end: 20190904
  10. STILNOX [Concomitant]
     Active Substance: ZOLPIDEM TARTRATE
     Dosage: UNK
  11. PREGABALIN MYLAN [Suspect]
     Active Substance: PREGABALIN
     Indication: PRODUCT USED FOR UNKNOWN INDICATION
     Dosage: 2 DOSAGE FORM, QD
     Route: 048
     Dates: start: 20190730, end: 20190911
  12. LOVENOX [Concomitant]
     Active Substance: ENOXAPARIN SODIUM
     Dosage: UNK
  13. BRINTELLIX [Concomitant]
     Active Substance: VORTIOXETINE HYDROBROMIDE
     Dosage: UNK
  14. TYGACIL [Concomitant]
     Active Substance: TIGECYCLINE
     Dosage: UNK

REACTIONS (2)
  - Erythema [Recovered/Resolved]
  - Pruritus [Recovered/Resolved]

NARRATIVE: CASE EVENT DATE: 20190908
